FAERS Safety Report 8424013 (Version 3)
Quarter: 2014Q4

REPORT INFORMATION
  Report Type: Spontaneous
  Country: DE (occurrence: DE)
  Receive Date: 20120224
  Receipt Date: 20141219
  Transmission Date: 20150529
  Serious: Yes (Other)
  Sender: FDA-Public Use
  Company Number: DE-UCBSA-051870

PATIENT
  Sex: Female
  Weight: 78 kg

DRUGS (3)
  1. NEUPRO [Suspect]
     Active Substance: ROTIGOTINE
     Indication: RESTLESS LEGS SYNDROME
     Dosage: UPTO 2 PATCHCES PER DAY
     Route: 062
     Dates: start: 20110112, end: 20110224
  2. NEUPRO [Suspect]
     Active Substance: ROTIGOTINE
     Dosage: 8 MG/24H
     Route: 062
  3. NEUPRO [Suspect]
     Active Substance: ROTIGOTINE
     Dosage: UPTO 6 PATCHCES PER DAY
     Route: 062
     Dates: start: 20110224, end: 20110324

REACTIONS (5)
  - Overdose [Unknown]
  - Drug dependence [Unknown]
  - Off label use [Unknown]
  - Euphoric mood [Unknown]
  - Drug ineffective [Unknown]

NARRATIVE: CASE EVENT DATE: 2011
